FAERS Safety Report 17235900 (Version 2)
Quarter: 2020Q1

REPORT INFORMATION
  Report Type: Spontaneous
  Country: US (occurrence: US)
  Receive Date: 20200106
  Receipt Date: 20200108
  Transmission Date: 20200409
  Serious: Yes (Other)
  Sender: FDA-Public Use
  Company Number: US-009507513-2001USA000972

PATIENT
  Sex: Female

DRUGS (1)
  1. NUVARING [Suspect]
     Active Substance: ETHINYL ESTRADIOL\ETONOGESTREL
     Indication: MENSTRUATION IRREGULAR
     Dosage: SINGLE RING, FOUR WEEKS CONTINUOUSLY
     Route: 067
     Dates: start: 201910

REACTIONS (5)
  - Metrorrhagia [Recovered/Resolved]
  - Pharyngitis streptococcal [Recovered/Resolved]
  - Tonsillectomy [Recovered/Resolved]
  - Incorrect product administration duration [Unknown]
  - Device use issue [Unknown]

NARRATIVE: CASE EVENT DATE: 2019
